FAERS Safety Report 7481939-X (Version None)
Quarter: 2011Q2

REPORT INFORMATION
  Report Type: 
  Country: None (occurrence: None)
  Receive Date: 20110516
  Receipt Date: 20110505
  Transmission Date: 20111010
  Serious: Yes (Other)
  Sender: FDA-Public Use
  Company Number: US-ASTRAZENECA-2011SE27381

PATIENT
  Age: 54 Year
  Sex: Female
  Weight: 59.9 kg

DRUGS (16)
  1. REGLAN [Concomitant]
  2. SEROQUEL [Suspect]
     Route: 048
     Dates: start: 20110502
  3. METHADONE HCL [Concomitant]
  4. MELPHALAN HYDROCHLORIDE [Concomitant]
  5. CARISOPRODOL [Concomitant]
  6. SEROQUEL [Suspect]
     Indication: BIPOLAR DISORDER
     Route: 048
     Dates: start: 20081201
  7. MORPHINE [Concomitant]
  8. CLONAZEPAM [Concomitant]
  9. SEROQUEL [Suspect]
     Route: 048
     Dates: start: 20110502
  10. SEROQUEL [Suspect]
     Indication: SLEEP DISORDER
     Route: 048
     Dates: start: 20081201
  11. SEROQUEL [Suspect]
     Route: 048
     Dates: start: 20110502
  12. EFFEXOR [Concomitant]
  13. HYDROCODONE BITARTRATE [Concomitant]
  14. PROMETHAZINE [Concomitant]
  15. ALPRAZOLAM [Concomitant]
  16. SEROQUEL [Suspect]
     Indication: SCHIZOPHRENIA
     Route: 048
     Dates: start: 20081201

REACTIONS (8)
  - DISORIENTATION [None]
  - DRUG DOSE OMISSION [None]
  - KNEE OPERATION [None]
  - MANIA [None]
  - DEPRESSION [None]
  - INSOMNIA [None]
  - DEVICE RELATED INFECTION [None]
  - DELUSION [None]
